FAERS Safety Report 12450792 (Version 1)
Quarter: 2016Q2

REPORT INFORMATION
  Report Type: Spontaneous
  Country: US (occurrence: US)
  Receive Date: 20160609
  Receipt Date: 20160609
  Transmission Date: 20160815
  Serious: No
  Sender: FDA-Public Use
  Company Number: US-PERRIGO-16US014179

PATIENT
  Age: 42 Year
  Sex: Male
  Weight: 97.51 kg

DRUGS (3)
  1. PERMETHRIN. [Suspect]
     Active Substance: PERMETHRIN
     Indication: ACARODERMATITIS
     Dosage: ONE TREATMENT, SINGLE
     Route: 061
     Dates: start: 20160304, end: 20160304
  2. VITAMINS NOS [Concomitant]
     Active Substance: VITAMINS
     Indication: SUPPLEMENTATION THERAPY
     Dosage: UNK
     Route: 048
     Dates: start: 201602
  3. PERMETHRIN. [Suspect]
     Active Substance: PERMETHRIN
     Dosage: ONE TREATMENT, SINGLE
     Route: 061
     Dates: start: 20160311, end: 20160311

REACTIONS (4)
  - Drug ineffective [Unknown]
  - Dysgeusia [Not Recovered/Not Resolved]
  - Nausea [Not Recovered/Not Resolved]
  - Inappropriate schedule of drug administration [Recovered/Resolved]

NARRATIVE: CASE EVENT DATE: 20160304
